FAERS Safety Report 7610245-5 (Version None)
Quarter: 2011Q3

REPORT INFORMATION
  Report Type: 
  Country: None (occurrence: None)
  Receive Date: 20110706
  Receipt Date: 20110623
  Transmission Date: 20111222
  Serious: Yes (Other)
  Sender: FDA-Public Use
  Company Number: 2011SP029437

PATIENT
  Age: 36 Year
  Sex: Male

DRUGS (2)
  1. INTERFERON ALFA-2B RECOMBINANT (INTERFERON ALFA-2B) [Suspect]
     Indication: HEPATITIS C
     Dates: start: 20040101
  2. RIBAVIRIN [Suspect]
     Indication: HEPATITIS C
     Dates: start: 20040101

REACTIONS (6)
  - SUDDEN VISUAL LOSS [None]
  - CATARACT [None]
  - VOGT-KOYANAGI-HARADA SYNDROME [None]
  - RETINAL DEGENERATION [None]
  - RETINAL DETACHMENT [None]
  - CHORIORETINAL SCAR [None]
